FAERS Safety Report 7675690-0 (Version None)
Quarter: 2011Q3

REPORT INFORMATION
  Report Type: 
  Country: None (occurrence: None)
  Receive Date: 20110810
  Receipt Date: 20110803
  Transmission Date: 20111222
  Serious: Yes (Death, Life-Threatening, Hospitalization, Other)
  Sender: FDA-Public Use
  Company Number: US-CELGENEUS-163-21880-11040891

PATIENT
  Sex: Male
  Weight: 76.1 kg

DRUGS (30)
  1. REVLIMID [Suspect]
     Indication: MULTIPLE MYELOMA
     Dosage: 15 MILLIGRAM
     Route: 048
     Dates: start: 20101108, end: 20110308
  2. LEVOXYL [Concomitant]
     Dosage: 100 MICROGRAM
     Route: 048
  3. CLONAZEPAM [Concomitant]
     Dosage: .5
     Route: 048
  4. DEXAMETHASONE [Concomitant]
     Dosage: 40 MILLIGRAM
     Route: 048
     Dates: start: 20101108, end: 20110207
  5. SPIRIVA [Concomitant]
     Dosage: 1 PUFF
     Route: 065
  6. FLOVENT [Concomitant]
     Dosage: 2 PUFFS
     Route: 065
  7. AMLODIPINE [Concomitant]
     Dosage: 5 MILLIGRAM
     Route: 065
  8. CYMBALTA [Concomitant]
     Dosage: 30 MILLIGRAM
     Route: 048
  9. LASIX [Concomitant]
     Dosage: 20 MILLIGRAM
     Route: 048
  10. AMLODIPINE [Concomitant]
     Dosage: 2.5 MILLIGRAM
     Route: 048
  11. MUCINEX DM [Concomitant]
     Dosage: 2 TABLET
     Route: 048
  12. ULORIC [Concomitant]
     Dosage: 40 MILLIGRAM
     Route: 048
  13. AREDIA [Concomitant]
     Route: 065
  14. RANITIDINE [Concomitant]
     Dosage: 150 MILLIGRAM
     Route: 048
  15. OXYCONTIN [Concomitant]
     Dosage: 40 MILLIGRAM
     Route: 048
  16. SEPTRA DS [Concomitant]
     Dosage: 1 TABLET
     Route: 048
  17. METOPROLOL XR [Concomitant]
     Dosage: 50 MILLIGRAM
     Route: 048
  18. PROAIR HFA [Concomitant]
     Dosage: 1-2 PUFFS
     Route: 065
  19. OSTEO BI-FLEX [Concomitant]
     Dosage: 2 TABLET
     Route: 048
  20. FORADIL [Concomitant]
     Dosage: 2 PUFFS
     Route: 065
  21. COUMADIN [Concomitant]
     Indication: ATRIAL FIBRILLATION
     Route: 065
     Dates: end: 20091018
  22. LEVOTHYROXINE SODIUM [Concomitant]
     Dosage: 100 MICROGRAM
     Route: 065
  23. POTASSIUM CHLORIDE [Concomitant]
     Dosage: 10 MILLIEQUIVALENTS
     Route: 065
  24. TRAMADOL HYDROCHLORIDE AND ACETAMINOPHEN [Concomitant]
     Indication: PAIN
     Dosage: 50/100MG
     Route: 048
  25. FLOMAX [Concomitant]
     Dosage: .4 MILLIGRAM
     Route: 048
  26. ASPIRIN [Concomitant]
     Dosage: 81 MILLIGRAM
     Route: 048
  27. AMIODARONE HCL [Concomitant]
     Indication: ATRIAL FIBRILLATION
     Route: 065
     Dates: start: 20110201
  28. LIPITOR [Concomitant]
     Dosage: 20 MILLIGRAM
     Route: 048
  29. POTASSIUM CITRATE [Concomitant]
     Dosage: 10 MILLIEQUIVALENTS
     Route: 048
  30. GABAPENTIN [Concomitant]
     Route: 065

REACTIONS (8)
  - CHRONIC OBSTRUCTIVE PULMONARY DISEASE [None]
  - RENAL FAILURE ACUTE [None]
  - PNEUMONIA [None]
  - CARDIAC ARREST [None]
  - NEUTROPENIA [None]
  - ATRIAL FIBRILLATION [None]
  - ENTEROCOCCAL INFECTION [None]
  - DEHYDRATION [None]
